FAERS Safety Report 23252551 (Version 1)
Quarter: 2023Q4

REPORT INFORMATION
  Report Type: Spontaneous
  Country: US (occurrence: US)
  Receive Date: 20231201
  Receipt Date: 20231201
  Transmission Date: 20240110
  Serious: No
  Sender: FDA-Public Use
  Company Number: US-SANDOZ-SDZ2023US012743

PATIENT
  Age: 61 Year
  Sex: Female
  Weight: 44.1 kg

DRUGS (3)
  1. LINEZOLID [Suspect]
     Active Substance: LINEZOLID
     Indication: Mycobacterium avium complex infection
     Dosage: 600 MG, QD PO
     Route: 065
     Dates: start: 20230629, end: 20230705
  2. RIFAMPIN [Suspect]
     Active Substance: RIFAMPIN
     Indication: Mycobacterium avium complex infection
     Dosage: 600 MG
     Route: 065
     Dates: start: 20230630, end: 20230705
  3. AZITHROMYCIN [Concomitant]
     Active Substance: AZITHROMYCIN
     Indication: Mycobacterium avium complex infection
     Dosage: 500 MG
     Route: 065
     Dates: start: 20230629

REACTIONS (5)
  - Abdominal discomfort [Unknown]
  - Drug intolerance [Unknown]
  - Headache [Recovered/Resolved]
  - Nausea [Recovered/Resolved]
  - Diarrhoea [Recovered/Resolved]

NARRATIVE: CASE EVENT DATE: 20230629
